FAERS Safety Report 7365839-1 (Version None)
Quarter: 2011Q1

REPORT INFORMATION
  Report Type: 
  Country: None (occurrence: None)
  Receive Date: 20110316
  Receipt Date: 20110316
  Transmission Date: 20110831
  Serious: Yes (Other)
  Sender: FDA-Public Use
  Company Number: None

PATIENT
  Age: 26 Year
  Sex: Female
  Weight: 56.6996 kg

DRUGS (1)
  1. CETIRIZINE HCL AND PSEUDOEPHEDRINE [Suspect]
     Indication: HYPERSENSITIVITY
     Dosage: 1 PILL 24 HOURS PO
     Route: 048
     Dates: start: 20080101, end: 20110315

REACTIONS (6)
  - URTICARIA [None]
  - CRYING [None]
  - SCRATCH [None]
  - PRURITUS GENERALISED [None]
  - FEELING ABNORMAL [None]
  - DRUG DEPENDENCE [None]
